FAERS Safety Report 4543656-5 (Version None)
Quarter: 2004Q4

REPORT INFORMATION
  Report Type: 
  Country: None (occurrence: None)
  Receive Date: 20041229
  Receipt Date: 20041229
  Transmission Date: 20050328
  Serious: Yes (Other)
  Sender: FDA-Public Use
  Company Number: None

PATIENT
  Sex: Female
  Weight: 87.0906 kg

DRUGS (3)
  1. OXYCODONE SR 80 MG TEVA PHARM [Suspect]
     Indication: OSTEOTOMY
     Dosage: 80 MG (7TABS) PO BID
     Route: 048
  2. OXYCODONE SR 80 MG TEVA PHARM [Suspect]
     Indication: PAIN
     Dosage: 80 MG (7TABS) PO BID
     Route: 048
  3. OXYCODONE SR 80 MG TEVA PHARM [Suspect]
     Indication: SYSTEMIC LUPUS ERYTHEMATOSUS
     Dosage: 80 MG (7TABS) PO BID
     Route: 048

REACTIONS (5)
  - BARRETT'S OESOPHAGUS [None]
  - CONDITION AGGRAVATED [None]
  - GASTROOESOPHAGEAL REFLUX DISEASE [None]
  - PHARMACEUTICAL PRODUCT COMPLAINT [None]
  - VOMITING [None]
